FAERS Safety Report 9924018 (Version 2)
Quarter: 2014Q1

REPORT INFORMATION
  Report Type: Spontaneous
  Country: US (occurrence: US)
  Receive Date: 20140225
  Receipt Date: 20140225
  Transmission Date: 20141002
  Serious: Yes (Death)
  Sender: FDA-Public Use
  Company Number: US-GE HEALTHCARE MEDICAL DIAGNOSTICS-OSCN-PR-0811S-0629

PATIENT
  Sex: Male

DRUGS (4)
  1. OMNISCAN [Suspect]
     Indication: RENAL TRANSPLANT
     Route: 042
     Dates: start: 20040430, end: 20040430
  2. OPTIRAY [Concomitant]
     Route: 042
     Dates: start: 20000809, end: 20050729
  3. OPTISON [Concomitant]
     Route: 042
     Dates: start: 20040611
  4. CONRAY MEGLUMIN [Concomitant]
     Route: 042
     Dates: start: 20020706

REACTIONS (1)
  - Nephrogenic systemic fibrosis [Fatal]
